FAERS Safety Report 8039678-2 (Version None)
Quarter: 2012Q1

REPORT INFORMATION
  Report Type: 
  Country: None (occurrence: None)
  Receive Date: 20120111
  Receipt Date: 20111220
  Transmission Date: 20120608
  Serious: No
  Sender: FDA-Public Use
  Company Number: US-AMGEN-USASP2011051812

PATIENT
  Age: 69 Year
  Sex: Female
  Weight: 49.206 kg

DRUGS (14)
  1. ENBREL [Suspect]
     Indication: RHEUMATOID ARTHRITIS
     Dosage: 50 MG, QWK
     Route: 058
     Dates: start: 20110901
  2. MTX                                /00113801/ [Concomitant]
     Dosage: 2.5 7 Q FRIDAY
     Dates: start: 20110417
  3. FOLIC ACID [Concomitant]
     Dosage: QD
     Dates: start: 20110823
  4. HYDROXYCHLOROQUINE SULFATE [Concomitant]
     Dosage: 200 MG, QD
     Dates: start: 20110417
  5. PREDNISONE TAB [Concomitant]
     Dosage: 10 MG
     Dates: start: 20110823
  6. PREDNISONE TAB [Concomitant]
     Dosage: PRN
     Dates: start: 20111220
  7. VOLTAREN [Concomitant]
     Dosage: PRN
     Dates: start: 20110417
  8. TRAMADOL HCL [Concomitant]
     Dosage: 50 MG, PRN
     Dates: start: 20110417
  9. MULTIVITAMIN                       /01229101/ [Concomitant]
     Dosage: QD
     Dates: start: 20110823
  10. ADVIL LIQUI-GELS [Concomitant]
     Dosage: 1200 MG, 2XDAY
     Dates: start: 20110417
  11. VITAMIN D [Concomitant]
     Dosage: 2000 IU, QD
     Dates: start: 20110417
  12. FISH OIL [Concomitant]
     Dosage: 1000 MG, QD
     Dates: start: 20110417
  13. PREDNISONE TAB [Concomitant]
     Dosage: 5 MG, QD
     Dates: start: 20110417
  14. OMERAZOLE [Concomitant]
     Dosage: PRN
     Dates: start: 20110417

REACTIONS (6)
  - INJECTION SITE ERYTHEMA [None]
  - INJECTION SITE WARMTH [None]
  - INJECTION SITE INDURATION [None]
  - INJECTION SITE PAIN [None]
  - INJECTION SITE MASS [None]
  - INJECTION SITE CELLULITIS [None]
